FAERS Safety Report 8214099-8 (Version None)
Quarter: 2012Q1

REPORT INFORMATION
  Report Type: 
  Country: None (occurrence: None)
  Receive Date: 20120316
  Receipt Date: 20120312
  Transmission Date: 20120608
  Serious: No
  Sender: FDA-Public Use
  Company Number: US-PFIZER INC-2012065194

PATIENT
  Sex: Female
  Weight: 64.4 kg

DRUGS (1)
  1. ACCURETIC [Suspect]
     Indication: HYPERTENSION
     Dosage: [QUINAPRIL 10MG]/[HYDROCHLOROTHIAZIDE 12.5MG] , 1X/DAY
     Route: 048
     Dates: start: 20120221

REACTIONS (1)
  - HYPOAESTHESIA [None]
